FAERS Safety Report 16148140 (Version 1)
Quarter: 2019Q2

REPORT INFORMATION
  Report Type: Spontaneous
  Country: CN (occurrence: CN)
  Receive Date: 20190402
  Receipt Date: 20190402
  Transmission Date: 20190711
  Serious: Yes (Other)
  Sender: FDA-Public Use
  Company Number: CN-BAYER-2019-059468

PATIENT
  Age: 89 Year
  Sex: Female
  Weight: 56 kg

DRUGS (4)
  1. AVELOX [Suspect]
     Active Substance: MOXIFLOXACIN HYDROCHLORIDE
     Indication: LUNG INFECTION
  2. FEI LI KE HE JI [Concomitant]
  3. AMINOPHYLLINE. [Concomitant]
     Active Substance: AMINOPHYLLINE
  4. AVELOX [Suspect]
     Active Substance: MOXIFLOXACIN HYDROCHLORIDE
     Indication: PNEUMONIA
     Dosage: 0.4 G, QD
     Route: 048
     Dates: start: 20190131, end: 20190131

REACTIONS (1)
  - Haematochezia [Recovering/Resolving]

NARRATIVE: CASE EVENT DATE: 20190201
